FAERS Safety Report 9706127 (Version 2)
Quarter: 2013Q4

REPORT INFORMATION
  Report Type: Spontaneous
  Country: US (occurrence: US)
  Receive Date: 20131124
  Receipt Date: 20131124
  Transmission Date: 20140711
  Serious: Yes (Hospitalization, Other)
  Sender: FDA-Public Use
  Company Number: US-SANOFI-AVENTIS-2012SA088680

PATIENT
  Age: 74 Year
  Sex: Male

DRUGS (27)
  1. PLAVIX [Suspect]
     Route: 048
  2. COUMADIN [Suspect]
     Route: 065
  3. PLACEBO [Concomitant]
     Dates: start: 20101109, end: 20130205
  4. METFORMIN [Concomitant]
  5. GLIMEPIRIDE [Concomitant]
     Dates: start: 20120523
  6. ASPIRIN [Concomitant]
     Dosage: DOSE: = OR { 100 MG
     Dates: start: 20101108, end: 20101108
  7. ASPIRIN [Concomitant]
     Dosage: DOSE: = OR { 100 MG
     Dates: start: 20110426, end: 20110426
  8. ASPIRIN [Concomitant]
     Dosage: DOSE: = OR { 100 MG
     Dates: start: 20110822, end: 20110822
  9. ASPIRIN [Concomitant]
     Dosage: DOSE: = OR { 100 MG
     Dates: start: 20110204, end: 20110204
  10. ASPIRIN [Concomitant]
     Dosage: DOSE: = OR { 100 MG
     Dates: start: 20110725, end: 20110725
  11. ASPIRIN [Concomitant]
     Dosage: DOSE: = OR { 100 MG
     Dates: start: 20111024, end: 20111024
  12. ASPIRIN [Concomitant]
     Dosage: DOSE: = OR { 100 MG
     Dates: start: 20120425, end: 20120425
  13. ASPIRIN [Concomitant]
     Dosage: DOSE: = OR { 100 MG
     Dates: start: 20120127, end: 20120127
  14. ASPIRIN [Concomitant]
     Dosage: DOSE: } 100 MG
     Dates: start: 20120731, end: 20120731
  15. ASPIRIN [Concomitant]
     Dosage: DOSE: = OR { 100 MG
     Dates: start: 20121029, end: 20121029
  16. CALCIUM CHANNEL BLOCKERS [Concomitant]
     Dates: start: 20101108, end: 20101108
  17. CALCIUM CHANNEL BLOCKERS [Concomitant]
     Dates: start: 20110426, end: 20110426
  18. CALCIUM CHANNEL BLOCKERS [Concomitant]
     Dates: start: 20110822, end: 20110822
  19. CALCIUM CHANNEL BLOCKERS [Concomitant]
     Dates: start: 20110204, end: 20110204
  20. CALCIUM CHANNEL BLOCKERS [Concomitant]
     Dates: start: 20110725, end: 20110725
  21. CALCIUM CHANNEL BLOCKERS [Concomitant]
     Dates: start: 20111024, end: 20111024
  22. CALCIUM CHANNEL BLOCKERS [Concomitant]
     Dates: start: 20120425, end: 20120425
  23. CALCIUM CHANNEL BLOCKERS [Concomitant]
     Dates: start: 20120127, end: 20120127
  24. CALCIUM CHANNEL BLOCKERS [Concomitant]
     Dates: start: 20120731, end: 20120731
  25. RANOLAZINE [Concomitant]
     Dates: start: 20121101
  26. DABIGATRAN [Concomitant]
     Dates: start: 20120510
  27. NIACIN [Concomitant]
     Route: 065

REACTIONS (1)
  - Upper gastrointestinal haemorrhage [Recovered/Resolved]
